FAERS Safety Report 5117570-0 (Version None)
Quarter: 2006Q3

REPORT INFORMATION
  Report Type: 
  Country: None (occurrence: None)
  Receive Date: 20060929
  Receipt Date: 20060914
  Transmission Date: 20061208
  Serious: Yes (Hospitalization)
  Sender: FDA-Public Use
  Company Number: US-ROCHE-463802

PATIENT
  Age: 68 Year
  Sex: Female
  Weight: 59.5 kg

DRUGS (19)
  1. CAPECITABINE [Suspect]
     Indication: BREAST CANCER
     Route: 048
     Dates: start: 20060117
  2. AVASTIN [Suspect]
     Indication: BREAST CANCER
     Route: 042
     Dates: start: 20060117
  3. OXYCODONE HCL [Concomitant]
  4. DEXAMETHASONE TAB [Concomitant]
  5. DULCOLAX [Concomitant]
  6. REGLAN [Concomitant]
  7. AMBIEN [Concomitant]
  8. PROTONIX [Concomitant]
  9. SENOKOT [Concomitant]
  10. OXYCONTIN [Concomitant]
  11. CORGARD [Concomitant]
  12. DIGOXIN [Concomitant]
  13. LASIX [Concomitant]
  14. GLIPIZIDE [Concomitant]
  15. ACTIGALL [Concomitant]
  16. CENTRUM [Concomitant]
  17. PRILOSEC [Concomitant]
  18. DIOVAN [Concomitant]
  19. NORVASC [Concomitant]

REACTIONS (1)
  - PERIRECTAL ABSCESS [None]
